FAERS Safety Report 16699657 (Version 7)
Quarter: 2019Q4

REPORT INFORMATION
  Report Type: Report from Study
  Country: US (occurrence: US)
  Receive Date: 20190813
  Receipt Date: 20191029
  Transmission Date: 20200122
  Serious: Yes (Hospitalization, Other)
  Sender: FDA-Public Use
  Company Number: US-ACTELION-A-NJ2019-191835

PATIENT
  Age: 61 Year
  Sex: Female
  Weight: 66.21 kg

DRUGS (5)
  1. ADEMPAS [Concomitant]
     Active Substance: RIOCIGUAT
     Dosage: 1.5 MG, TID
  2. VELETRI [Suspect]
     Active Substance: EPOPROSTENOL
     Indication: PULMONARY ARTERIAL HYPERTENSION
     Dosage: 48.4 NG/KG, PER MIN
     Route: 042
  3. COUMADIN [Concomitant]
     Active Substance: WARFARIN SODIUM
  4. OPSUMIT [Suspect]
     Active Substance: MACITENTAN
     Indication: PULMONARY ARTERIAL HYPERTENSION
     Dosage: 10 MG, QD
     Route: 048
  5. REMODULIN [Suspect]
     Active Substance: TREPROSTINIL
     Indication: PRODUCT USED FOR UNKNOWN INDICATION
     Dosage: 46 NG/KG, PER MIN
     Route: 058

REACTIONS (26)
  - Catheter site swelling [Unknown]
  - Hypopnoea [Unknown]
  - Heart rate increased [Unknown]
  - Weight fluctuation [Unknown]
  - Catheter site infection [Unknown]
  - Seasonal allergy [Unknown]
  - Rhinorrhoea [Unknown]
  - Sepsis [Unknown]
  - Oedema [Unknown]
  - Infusion site pain [Unknown]
  - Localised oedema [Unknown]
  - Hypotension [Unknown]
  - Unevaluable event [Unknown]
  - Dyspepsia [Unknown]
  - Pain in extremity [Unknown]
  - Pain in jaw [Unknown]
  - Sneezing [Unknown]
  - Lacrimation increased [Unknown]
  - Thrombosis [Unknown]
  - Device related infection [Unknown]
  - Constipation [Unknown]
  - Fluid overload [Unknown]
  - Catheter site thrombosis [Unknown]
  - Palpitations [Unknown]
  - Ear discomfort [Not Recovered/Not Resolved]
  - Oedema peripheral [Unknown]

NARRATIVE: CASE EVENT DATE: 201906
